FAERS Safety Report 6088642-1 (Version None)
Quarter: 2009Q1

REPORT INFORMATION
  Report Type: 
  Country: None (occurrence: None)
  Receive Date: 20090224
  Receipt Date: 20090212
  Transmission Date: 20090719
  Serious: Yes (Hospitalization)
  Sender: FDA-Public Use
  Company Number: US-ROCHE-614033

PATIENT
  Sex: Female
  Weight: 66.7 kg

DRUGS (1)
  1. CAPECITABINE [Suspect]
     Dosage: TAKEN 4 TABLETS DAILY
     Route: 065
     Dates: start: 20080929

REACTIONS (2)
  - FALL [None]
  - PELVIC FRACTURE [None]
